FAERS Safety Report 4987855-7 (Version None)
Quarter: 2006Q2

REPORT INFORMATION
  Report Type: 
  Country: None (occurrence: None)
  Receive Date: 20060427
  Receipt Date: 20060427
  Transmission Date: 20061013
  Serious: Yes (Life-Threatening, Hospitalization, Disabling)
  Sender: FDA-Public Use
  Company Number: None

PATIENT
  Age: 46 Year
  Sex: Female
  Weight: 70.3075 kg

DRUGS (3)
  1. ZYPREXA [Suspect]
     Indication: DEPRESSION
     Dosage: DAILY PO
     Route: 048
     Dates: start: 20040620, end: 20041114
  2. ZYPREXA [Suspect]
     Indication: SLEEP DISORDER
     Dosage: DAILY PO
     Route: 048
     Dates: start: 20040620, end: 20041114
  3. DORAL [Concomitant]

REACTIONS (8)
  - BIPOLAR DISORDER [None]
  - DRUG TOXICITY [None]
  - GAIT DISTURBANCE [None]
  - ILL-DEFINED DISORDER [None]
  - IMPAIRED WORK ABILITY [None]
  - LIVING IN RESIDENTIAL INSTITUTION [None]
  - ROAD TRAFFIC ACCIDENT [None]
  - SUICIDE ATTEMPT [None]
